FAERS Safety Report 18053928 (Version 2)
Quarter: 2020Q3

REPORT INFORMATION
  Report Type: Spontaneous
  Country: US (occurrence: US)
  Receive Date: 20200722
  Receipt Date: 20200729
  Transmission Date: 20201103
  Serious: No
  Sender: FDA-Public Use
  Company Number: US-PFIZER INC-2020278716

PATIENT
  Age: 52 Year
  Sex: Female
  Weight: 62.14 kg

DRUGS (5)
  1. NARDIL [Suspect]
     Active Substance: PHENELZINE SULFATE
     Dosage: 15 MG, 4X/DAY
     Dates: start: 1995
  2. LORAZEPAM. [Concomitant]
     Active Substance: LORAZEPAM
     Dosage: 0.5 MG, 4X/DAY
     Dates: start: 2020
  3. NARDIL [Suspect]
     Active Substance: PHENELZINE SULFATE
     Indication: DEPRESSION
     Dosage: 15 MG, 3X/DAY
     Dates: start: 198509
  4. LORAZEPAM. [Concomitant]
     Active Substance: LORAZEPAM
     Indication: FEAR
     Dosage: 0.5 MG, 4X/DAY (1 MG TABLET, TAKES A HALF TABLET (0.5 MG) 4 TIMES A DAY)
     Dates: start: 1985
  5. LORAZEPAM. [Concomitant]
     Active Substance: LORAZEPAM
     Dosage: 0.5 MG, 3X/DAY

REACTIONS (4)
  - Therapeutic product effect decreased [Not Recovered/Not Resolved]
  - Product shape issue [Unknown]
  - Product coating issue [Unknown]
  - Nausea [Unknown]
